FAERS Safety Report 4457750-0 (Version None)
Quarter: 2004Q3

REPORT INFORMATION
  Report Type: 
  Country: None (occurrence: None)
  Receive Date: 20040922
  Receipt Date: 20040909
  Transmission Date: 20050211
  Serious: Yes (Death)
  Sender: FDA-Public Use
  Company Number: 2004063984

PATIENT
  Age: 75 Year
  Sex: Female

DRUGS (1)
  1. ZELDOX [Suspect]
     Indication: DEMENTIA
     Dosage: 40 MG (40 MG, 1 IN 1 D), ORAL
     Route: 048
     Dates: start: 20040801, end: 20040801

REACTIONS (1)
  - CARDIAC DISORDER [None]
